FAERS Safety Report 6436879-1 (Version None)
Quarter: 2009Q4

REPORT INFORMATION
  Report Type: 
  Country: None (occurrence: None)
  Receive Date: 20091109
  Receipt Date: 20091028
  Transmission Date: 20100525
  Serious: Yes (Hospitalization)
  Sender: FDA-Public Use
  Company Number: 2009-04383

PATIENT

DRUGS (2)
  1. VELCADE [Suspect]
     Indication: MULTIPLE MYELOMA
  2. TIPIFARNIB (TIPIFARNIB) ORAL DRUG UNSPECIFIED FORM [Suspect]
     Indication: MULTIPLE MYELOMA

REACTIONS (3)
  - INCISION SITE HAEMATOMA [None]
  - SPINAL CORD COMPRESSION [None]
  - WOUND DEHISCENCE [None]
